FAERS Safety Report 19002795 (Version 1)
Quarter: 2021Q1

REPORT INFORMATION
  Report Type: Spontaneous
  Country: US (occurrence: US)
  Receive Date: 20210312
  Receipt Date: 20210312
  Transmission Date: 20210420
  Serious: Yes (Hospitalization, Other)
  Sender: FDA-Public Use
  Company Number: US-PFIZER INC-2021245301

PATIENT
  Age: 6 Decade
  Sex: Female

DRUGS (3)
  1. LEXISCAN [Suspect]
     Active Substance: REGADENOSON
     Dosage: UNK
  2. AMINOPHYLLINE. [Suspect]
     Active Substance: AMINOPHYLLINE
     Dosage: 62.5 MG
  3. LEXISCAN [Suspect]
     Active Substance: REGADENOSON
     Indication: CARDIAC STRESS TEST
     Dosage: UNK
     Dates: start: 2020, end: 2020

REACTIONS (2)
  - Seizure [Unknown]
  - Dyspnoea [Unknown]

NARRATIVE: CASE EVENT DATE: 2020
